FAERS Safety Report 5342831-X (Version None)
Quarter: 2007Q2

REPORT INFORMATION
  Report Type: 
  Country: None (occurrence: None)
  Receive Date: 20070601
  Receipt Date: 20070522
  Transmission Date: 20071010
  Serious: Yes (Other)
  Sender: FDA-Public Use
  Company Number: GB-PFIZER INC-2007042513

PATIENT

DRUGS (1)
  1. SOLU-MEDRONE [Suspect]
     Route: 030

REACTIONS (3)
  - BURNING SENSATION [None]
  - EXTRAVASATION [None]
  - PARAESTHESIA [None]
